FAERS Safety Report 23676674 (Version 1)
Quarter: 2024Q1

REPORT INFORMATION
  Report Type: Spontaneous
  Country: AU (occurrence: AU)
  Receive Date: 20240327
  Receipt Date: 20240327
  Transmission Date: 20240410
  Serious: Yes (Life-Threatening, Other)
  Sender: FDA-Public Use
  Company Number: AU-VERTICAL PHARMACEUTICALS-2024ALO00076

PATIENT
  Sex: Male

DRUGS (2)
  1. ESTRADIOL [Suspect]
     Active Substance: ESTRADIOL
     Indication: Gender reassignment therapy
     Dosage: FOR 49 YEARS
  2. CYPROTERONE ACETATE [Suspect]
     Active Substance: CYPROTERONE ACETATE
     Indication: Gender reassignment therapy
     Dosage: FOR 49 YEARS

REACTIONS (3)
  - Meningioma [Unknown]
  - Product use issue [Unknown]
  - Product use in unapproved indication [Unknown]
